FAERS Safety Report 8572537-5 (Version None)
Quarter: 2012Q3

REPORT INFORMATION
  Report Type: 
  Country: None (occurrence: None)
  Receive Date: 20120806
  Receipt Date: 20120726
  Transmission Date: 20120928
  Serious: Yes (Other)
  Sender: FDA-Public Use
  Company Number: PL-ROCHE-1085686

PATIENT
  Sex: Female
  Weight: 65 kg

DRUGS (2)
  1. ANASTROZOLE [Suspect]
     Indication: BREAST CANCER METASTATIC
     Route: 048
     Dates: start: 20090901, end: 20111101
  2. HERCEPTIN [Suspect]
     Indication: BREAST CANCER METASTATIC
     Route: 042
     Dates: start: 20090408

REACTIONS (4)
  - BONE PAIN [None]
  - HUMERUS FRACTURE [None]
  - RADIUS FRACTURE [None]
  - ARTHRALGIA [None]
